FAERS Safety Report 6558764-7 (Version None)
Quarter: 2010Q1

REPORT INFORMATION
  Report Type: 
  Country: None (occurrence: None)
  Receive Date: 20100129
  Receipt Date: 20100120
  Transmission Date: 20100710
  Serious: Yes (Hospitalization)
  Sender: FDA-Public Use
  Company Number: KR-B.I. PHARMACEUTICALS,INC./RIDGEFIELD-2010-BP-00683BP

PATIENT
  Sex: Male
  Weight: 58.5 kg

DRUGS (8)
  1. PRAMIPEXOLE DIHYDROCHLORIDE [Suspect]
     Indication: PARKINSON'S DISEASE
     Dosage: 3 MG
     Route: 048
     Dates: start: 20090528
  2. JUMEX [Suspect]
     Indication: PARKINSON'S DISEASE
     Dosage: 5 MG
     Route: 048
     Dates: start: 20050628
  3. GANATON [Suspect]
     Indication: PROPHYLAXIS
     Dosage: 50 MG
     Route: 048
     Dates: start: 20050628
  4. SYLCON (CALCIUM POLYCARBOPHIL) [Suspect]
     Indication: PROPHYLAXIS
     Dosage: 625 MG
     Route: 048
     Dates: start: 20090720
  5. STALEVO 100 [Suspect]
     Indication: PARKINSON'S DISEASE
     Dosage: 500 MG
     Route: 048
     Dates: start: 20070424
  6. MADOPAR DISPERSIBLE [Suspect]
     Indication: PARKINSON'S DISEASE
     Dosage: 100 MG
     Route: 048
     Dates: start: 20091012
  7. RIVOTRIL [Suspect]
     Indication: PARKINSON'S DISEASE
     Dosage: 0.5 MG
     Route: 048
     Dates: start: 20060214
  8. RIZE [Suspect]
     Indication: PARKINSON'S DISEASE
     Dosage: 100 MG
     Route: 048
     Dates: start: 20070911

REACTIONS (1)
  - PARKINSON'S DISEASE [None]
